FAERS Safety Report 20611206 (Version 1)
Quarter: 2022Q1

REPORT INFORMATION
  Report Type: Spontaneous
  Country: US (occurrence: None)
  Receive Date: 20220317
  Receipt Date: 20220317
  Transmission Date: 20220424
  Serious: No
  Sender: FDA-Public Use
  Company Number: None

PATIENT
  Age: 40 Year
  Sex: Female

DRUGS (1)
  1. CAPECITABINE [Suspect]
     Active Substance: CAPECITABINE
     Dosage: FREQUENCY : TWICE A DAY;?
     Route: 048

REACTIONS (6)
  - Fatigue [None]
  - Hepatic enzyme increased [None]
  - Nausea [None]
  - Abdominal pain [None]
  - Dry mouth [None]
  - Stomatitis [None]

NARRATIVE: CASE EVENT DATE: 20220317
